FAERS Safety Report 17619195 (Version 1)
Quarter: 2020Q2

REPORT INFORMATION
  Report Type: Report from Study
  Country: IN (occurrence: IN)
  Receive Date: 20200402
  Receipt Date: 20200402
  Transmission Date: 20200713
  Serious: Yes (Death, Other)
  Sender: FDA-Public Use
  Company Number: IN-BRISTOL-MYERS SQUIBB COMPANY-BMS-2020-028178

PATIENT
  Age: 20 Year
  Sex: Male

DRUGS (1)
  1. DASATINIB. [Suspect]
     Active Substance: DASATINIB
     Indication: CHRONIC MYELOID LEUKAEMIA TRANSFORMATION
     Dosage: 140 MILLIGRAM, QD
     Route: 048
     Dates: start: 20121030, end: 20200321

REACTIONS (1)
  - Death [Fatal]

NARRATIVE: CASE EVENT DATE: 20200322
